FAERS Safety Report 5665008-7 (Version None)
Quarter: 2008Q1

REPORT INFORMATION
  Report Type: 
  Country: None (occurrence: None)
  Receive Date: 20080314
  Receipt Date: 20080304
  Transmission Date: 20080703
  Serious: Yes (Death)
  Sender: FDA-Public Use
  Company Number: CN-PFIZER INC-2008020366

PATIENT
  Age: 91 Year
  Sex: Male

DRUGS (2)
  1. CARDURA [Suspect]
     Indication: URINARY TRACT DISORDER
     Route: 048
     Dates: start: 20080229, end: 20080229
  2. CEFUROXIME SODIUM [Suspect]
     Indication: URINARY TRACT INFECTION
     Route: 042
     Dates: start: 20080229, end: 20080229

REACTIONS (1)
  - ACUTE RESPIRATORY FAILURE [None]
